FAERS Safety Report 12563139 (Version 4)
Quarter: 2016Q3

REPORT INFORMATION
  Report Type: Report from Study
  Country: CZ (occurrence: CZ)
  Receive Date: 20160715
  Receipt Date: 20160726
  Transmission Date: 20161109
  Serious: Yes (Hospitalization)
  Sender: FDA-Public Use
  Company Number: CZ-ROCHE-1791652

PATIENT
  Age: 73 Year
  Sex: Male

DRUGS (10)
  1. DEGAN [Concomitant]
     Active Substance: METOCLOPRAMIDE HYDROCHLORIDE
     Indication: PROPHYLAXIS
     Route: 048
     Dates: start: 20160603
  2. DULCOLAX NOS [Concomitant]
     Active Substance: BISACODYL OR DOCUSATE SODIUM
     Indication: PROPHYLAXIS
     Dosage: PER RECTUM
     Route: 065
     Dates: start: 20160714, end: 20160716
  3. ZOREM (CZECH REPUBLIC) [Concomitant]
     Indication: HYPERTENSION
     Route: 048
  4. ACCUZIDE [Concomitant]
     Active Substance: HYDROCHLOROTHIAZIDE\QUINAPRIL HYDROCHLORIDE
     Indication: HYPERTENSION
     Dosage: 0.5 TABLET
     Route: 048
  5. ATEZOLIZUMAB [Suspect]
     Active Substance: ATEZOLIZUMAB
     Indication: BLADDER CANCER
     Dosage: MOST RECENT DOSE PRIOR TO EVENT ONSET: 21/JUN/2016 (AT START TIME 11:30).
     Route: 042
     Dates: start: 20160621
  6. VITAR SODA [Concomitant]
     Indication: PROPHYLAXIS
     Route: 048
     Dates: start: 20160620
  7. LEXAURIN [Concomitant]
     Active Substance: BROMAZEPAM
     Indication: PROPHYLAXIS
     Route: 048
     Dates: start: 20160707
  8. LACTULOSA [Concomitant]
     Active Substance: LACTULOSE
     Indication: PROPHYLAXIS
     Route: 048
  9. FRAXIPARINE [Concomitant]
     Active Substance: NADROPARIN CALCIUM
     Indication: PROPHYLAXIS
     Route: 058
     Dates: start: 20160707
  10. KALNORMIN [Concomitant]
     Active Substance: POTASSIUM CHLORIDE
     Indication: PROPHYLAXIS
     Route: 048
     Dates: start: 20160721

REACTIONS (1)
  - Liver disorder [Not Recovered/Not Resolved]

NARRATIVE: CASE EVENT DATE: 20160707
